FAERS Safety Report 5844321-4 (Version None)
Quarter: 2008Q3

REPORT INFORMATION
  Report Type: 
  Country: None (occurrence: None)
  Receive Date: 20080813
  Receipt Date: 20080813
  Transmission Date: 20090109
  Serious: Yes (Other)
  Sender: FDA-Public Use
  Company Number: AT-BOEHRINGER INGELHEIM GMBH, GERMANY-2008-BE-00060BE

PATIENT
  Sex: Male
  Weight: 76 kg

DRUGS (6)
  1. MICARDIS [Suspect]
     Indication: HYPERTONIA
     Dosage: 80 MG + 40 MG DAILY (=120MG)
     Route: 048
     Dates: end: 20080808
  2. MICARDIS [Suspect]
     Route: 048
     Dates: start: 20080808
  3. SIMVASTATIN [Concomitant]
     Indication: HYPERTONIA
     Route: 048
     Dates: start: 20080701
  4. MARCUMAR [Concomitant]
     Indication: PULMONARY EMBOLISM
     Dates: start: 20080701
  5. FLUDEX [Concomitant]
     Indication: HYPERTONIA
     Route: 048
     Dates: start: 20080701
  6. NOMEXOR [Concomitant]
     Indication: HYPERTONIA
     Route: 048

REACTIONS (2)
  - AGRANULOCYTOSIS [None]
  - LEUKOPENIA [None]
